FAERS Safety Report 16969156 (Version 1)
Quarter: 2019Q4

REPORT INFORMATION
  Report Type: Report from Study
  Country: GB (occurrence: GB)
  Receive Date: 20191029
  Receipt Date: 20191029
  Transmission Date: 20200122
  Serious: Yes (Other)
  Sender: FDA-Public Use
  Company Number: GB-TEVA-2019-GB-1127884

PATIENT
  Sex: Female

DRUGS (1)
  1. COPAXONE [Suspect]
     Active Substance: GLATIRAMER ACETATE
     Route: 058
     Dates: start: 2017

REACTIONS (3)
  - Injection site deformation [Recovered/Resolved]
  - Product dose omission [Unknown]
  - Injection site infection [Recovered/Resolved]

NARRATIVE: CASE EVENT DATE: 2019
